FAERS Safety Report 11029163 (Version 1)
Quarter: 2015Q2

REPORT INFORMATION
  Report Type: Spontaneous
  Country: DE (occurrence: DE)
  Receive Date: 20150415
  Receipt Date: 20150415
  Transmission Date: 20150821
  Serious: Yes (Other)
  Sender: FDA-Public Use
  Company Number: PHHY2015DE042166

PATIENT
  Age: 21 Year
  Sex: Male

DRUGS (3)
  1. ITRACONAZOLE. [Interacting]
     Active Substance: ITRACONAZOLE
     Indication: INFECTION PROPHYLAXIS
     Route: 065
  2. COTRIMOXAZOLE [Concomitant]
     Active Substance: SULFAMETHOXAZOLE\TRIMETHOPRIM
     Indication: INFECTION PROPHYLAXIS
     Route: 065
  3. ISOTRETINOIN [Suspect]
     Active Substance: ISOTRETINOIN
     Indication: ACNE
     Route: 062

REACTIONS (7)
  - Pneumonia [Recovering/Resolving]
  - Anal abscess [Recovering/Resolving]
  - Bronchopulmonary aspergillosis [Recovering/Resolving]
  - Drug interaction [Unknown]
  - Cough [Unknown]
  - Lymphadenitis [Recovering/Resolving]
  - Colitis [Recovering/Resolving]

NARRATIVE: CASE EVENT DATE: 2011
